FAERS Safety Report 13823778 (Version 2)
Quarter: 2017Q3

REPORT INFORMATION
  Report Type: Spontaneous
  Country: US (occurrence: US)
  Receive Date: 20170802
  Receipt Date: 20170911
  Transmission Date: 20171127
  Serious: No
  Sender: FDA-Public Use
  Company Number: US-PFIZER INC-2017329407

PATIENT
  Age: 66 Year
  Sex: Female
  Weight: 69.85 kg

DRUGS (5)
  1. ADRIAMYCIN [Suspect]
     Active Substance: DOXORUBICIN HYDROCHLORIDE
     Indication: INFLAMMATORY CARCINOMA OF BREAST STAGE III
     Dosage: UNK
     Dates: start: 20111212
  2. TAXOL [Suspect]
     Active Substance: PACLITAXEL
     Indication: INFLAMMATORY CARCINOMA OF BREAST STAGE III
     Dosage: UNK
  3. HERCEPTIN [Suspect]
     Active Substance: TRASTUZUMAB
     Indication: INFLAMMATORY CARCINOMA OF BREAST STAGE III
     Dosage: UNK
     Dates: start: 20120207
  4. CYTOXAN [Suspect]
     Active Substance: CYCLOPHOSPHAMIDE
     Indication: INFLAMMATORY CARCINOMA OF BREAST STAGE III
     Dosage: UNK
     Dates: start: 20111212
  5. ANASTROZOLE. [Suspect]
     Active Substance: ANASTROZOLE
     Indication: INFLAMMATORY CARCINOMA OF BREAST STAGE III
     Dosage: 1 MG, DAILY
     Route: 048
     Dates: start: 20120803

REACTIONS (4)
  - Invasive breast carcinoma [None]
  - Inflammatory carcinoma of breast stage III [None]
  - Oestrogen receptor assay positive [None]
  - Neoplasm recurrence [Unknown]
